FAERS Safety Report 9027200 (Version 1)
Quarter: 2013Q1

REPORT INFORMATION
  Report Type: Spontaneous
  Country: US (occurrence: US)
  Receive Date: 20130123
  Receipt Date: 20130123
  Transmission Date: 20140127
  Serious: No
  Sender: FDA-Public Use
  Company Number: US-OPTIMER PHARMACEUTICALS, INC.-20120145

PATIENT
  Sex: Male

DRUGS (1)
  1. DIFICID [Suspect]
     Indication: CLOSTRIDIUM DIFFICILE COLITIS
     Dosage: UNK
     Route: 065
     Dates: start: 2012, end: 2012

REACTIONS (2)
  - Off label use [Unknown]
  - Drug ineffective [Unknown]
